FAERS Safety Report 10868645 (Version 1)
Quarter: 2015Q1

REPORT INFORMATION
  Report Type: Report from Study
  Country: US (occurrence: US)
  Receive Date: 20150225
  Receipt Date: 20150225
  Transmission Date: 20150721
  Serious: Yes (Hospitalization)
  Sender: FDA-Public Use
  Company Number: US-ACTELION-A-NJ2014-110522

PATIENT
  Age: 47 Year
  Sex: Female

DRUGS (3)
  1. VELETRI [Suspect]
     Active Substance: EPOPROSTENOL
     Dosage: 30 NG/KG, PER MIN
     Route: 042
     Dates: start: 20141003
  2. OPSUMIT [Suspect]
     Active Substance: MACITENTAN
     Indication: PULMONARY ARTERIAL HYPERTENSION
     Dosage: 10 MG, QD
     Route: 048
     Dates: start: 20141208
  3. VELETRI [Suspect]
     Active Substance: EPOPROSTENOL
     Indication: PULMONARY ARTERIAL HYPERTENSION
     Dosage: 29 NG/KG, PER MIN
     Route: 042
     Dates: start: 20141003

REACTIONS (9)
  - Drain placement [Unknown]
  - Weight decreased [Unknown]
  - Blood potassium abnormal [Unknown]
  - Ascites [Unknown]
  - Liver disorder [Unknown]
  - Nausea [Unknown]
  - Malaise [Unknown]
  - Blood calcium abnormal [Unknown]
  - Paracentesis [Unknown]

NARRATIVE: CASE EVENT DATE: 20150130
